FAERS Safety Report 12386651 (Version 1)
Quarter: 2016Q2

REPORT INFORMATION
  Report Type: Spontaneous
  Country: AT (occurrence: AT)
  Receive Date: 20160519
  Receipt Date: 20160519
  Transmission Date: 20160815
  Serious: Yes (Death)
  Sender: FDA-Public Use
  Company Number: AT-ABBVIE-16P-009-1628282-00

PATIENT
  Sex: Female

DRUGS (2)
  1. DUODOPA [Suspect]
     Active Substance: CARBIDOPA\LEVODOPA
     Dosage: 16 HOUR THERAPY:MD 8.0ML, CR 3.7ML/HR, ED 2.0ML
     Route: 050
     Dates: start: 20160513, end: 20160515
  2. DUODOPA [Suspect]
     Active Substance: CARBIDOPA\LEVODOPA
     Indication: PARKINSON^S DISEASE
     Dosage: 16 HOUR THERAPY:MD: 8.0 MLCR: 3.9 ML/HED: 2.0 ML WITH 3 HOUR LOCK
     Route: 050
     Dates: start: 20110401, end: 20160513

REACTIONS (2)
  - Weight decreased [Fatal]
  - General physical health deterioration [Fatal]
